FAERS Safety Report 7413857-7 (Version None)
Quarter: 2011Q2

REPORT INFORMATION
  Report Type: 
  Country: None (occurrence: None)
  Receive Date: 20110413
  Receipt Date: 20110404
  Transmission Date: 20111010
  Serious: Yes (Hospitalization)
  Sender: FDA-Public Use
  Company Number: US-BRISTOL-MYERS SQUIBB COMPANY-15667520

PATIENT
  Age: 70 Year
  Sex: Male
  Weight: 70 kg

DRUGS (19)
  1. DEXTROSE [Concomitant]
     Indication: FATIGUE
     Dosage: 1DF=20.UNIT NOT SPECIFIED
     Route: 042
     Dates: start: 20110302
  2. SODIUM CHLORIDE [Concomitant]
     Indication: FATIGUE
     Route: 042
     Dates: start: 20110302
  3. PHENERGAN HCL [Concomitant]
     Indication: NAUSEA
     Route: 048
     Dates: start: 20110124
  4. DEXTROSE [Concomitant]
     Indication: NAUSEA
     Dosage: 1DF=20.UNIT NOT SPECIFIED
     Route: 042
     Dates: start: 20110302
  5. MINOCYCLINE [Concomitant]
     Indication: DERMATITIS ACNEIFORM
     Route: 048
     Dates: start: 20110214
  6. POTASSIUM CHLORIDE [Concomitant]
     Indication: HYPOKALAEMIA
     Route: 048
     Dates: start: 20110131
  7. KYTRIL [Concomitant]
     Indication: NAUSEA
     Route: 042
     Dates: start: 20110302
  8. PREDNISONE [Concomitant]
     Indication: FATIGUE
     Route: 048
     Dates: start: 20110330
  9. CETUXIMAB [Suspect]
     Indication: HEAD AND NECK CANCER
     Dosage: DURATION:64 DAYS. MOST RECENT INFU:30MAR11 NO OF INFU:9
     Route: 042
     Dates: start: 20110124, end: 20110330
  10. CISPLATIN [Suspect]
     Indication: HEAD AND NECK CANCER
     Dosage: DURATION:57 DAYS MOST RECENT INFU:23MAR11 NO OF INFU:3
     Route: 042
     Dates: start: 20110124, end: 20110323
  11. CLINDAMYCIN [Concomitant]
     Indication: DERMATITIS ACNEIFORM
     Route: 061
     Dates: start: 20110207
  12. MAGNESIUM OXIDE [Concomitant]
     Indication: HYPOMAGNESAEMIA
     Route: 048
     Dates: start: 20110302
  13. SODIUM CHLORIDE [Concomitant]
     Indication: ASTHENIA
     Route: 042
     Dates: start: 20110302
  14. PREVACID [Concomitant]
  15. MIRALAX [Concomitant]
     Indication: CONSTIPATION
     Route: 048
     Dates: start: 20110221
  16. FLUOROURACIL [Suspect]
     Indication: HEAD AND NECK CANCER
     Dosage: DURATION:57 DAYS. MOST RECENT INFU:23MAR11 NO OF INFU:3
     Route: 042
     Dates: start: 20110124, end: 20110323
  17. ANZEMET [Concomitant]
     Indication: NAUSEA
     Route: 048
     Dates: start: 20110124
  18. KYTRIL [Concomitant]
     Indication: FATIGUE
     Route: 042
     Dates: start: 20110302
  19. MINOCYCLINE [Concomitant]
     Indication: RASH
     Route: 048
     Dates: start: 20110311

REACTIONS (1)
  - HYPOTENSION [None]
